FAERS Safety Report 8804001 (Version 1)
Quarter: 2012Q4

REPORT INFORMATION
  Report Type: 
  Country: US (occurrence: US)
  Receive Date: 20120923
  Receipt Date: 20120923
  Transmission Date: 20130627
  Serious: No
  Sender: FDA-Public Use
  Company Number: US-TEVA-358307USA

PATIENT
  Age: 70 Year
  Sex: Male

DRUGS (1)
  1. TREANDA [Suspect]
     Route: 042
     Dates: start: 20120827

REACTIONS (1)
  - Diarrhoea [Not Recovered/Not Resolved]
